FAERS Safety Report 17132077 (Version 1)
Quarter: 2019Q4

REPORT INFORMATION
  Report Type: Spontaneous
  Country: TR (occurrence: TR)
  Receive Date: 20191210
  Receipt Date: 20191210
  Transmission Date: 20200122
  Serious: Yes (Hospitalization, Other)
  Sender: FDA-Public Use
  Company Number: TR-SUN PHARMACEUTICAL INDUSTRIES LTD-2019RR-230283

PATIENT
  Age: 16 Year
  Sex: Male

DRUGS (1)
  1. METFORMIN [Suspect]
     Active Substance: METFORMIN HYDROCHLORIDE
     Indication: PRODUCT USED FOR UNKNOWN INDICATION
     Dosage: 41 GRAM, IN TOTAL
     Route: 048

REACTIONS (5)
  - Anuria [Unknown]
  - Lactic acidosis [Unknown]
  - Renal disorder [Unknown]
  - Suicide attempt [Unknown]
  - Intentional overdose [Unknown]
